FAERS Safety Report 10977734 (Version 1)
Quarter: 2015Q2

REPORT INFORMATION
  Report Type: Spontaneous
  Country: US (occurrence: None)
  Receive Date: 20150401
  Receipt Date: 20150401
  Transmission Date: 20150821
  Serious: Yes (Other)
  Sender: FDA-Public Use
  Company Number: None

PATIENT
  Age: 48 Year
  Sex: Female

DRUGS (2)
  1. MEDERMA PM [Suspect]
     Active Substance: DIMETHICONE
     Indication: SCAR
     Dates: start: 20150301, end: 20150307
  2. MEDERMA PM [Suspect]
     Active Substance: DIMETHICONE
     Indication: PHOTODERMATOSIS
     Dates: start: 20150301, end: 20150307

REACTIONS (2)
  - Application site irritation [None]
  - Application site rash [None]

NARRATIVE: CASE EVENT DATE: 20150301
